FAERS Safety Report 15277828 (Version 2)
Quarter: 2018Q3

REPORT INFORMATION
  Report Type: Report from Study
  Country: DE (occurrence: DE)
  Receive Date: 20180814
  Receipt Date: 20180917
  Transmission Date: 20181010
  Serious: Yes (Death, Other)
  Sender: FDA-Public Use
  Company Number: DE-TEVA-2018-DE-939496

PATIENT
  Age: 52 Year
  Sex: Female
  Weight: 57 kg

DRUGS (25)
  1. 5?FU [Suspect]
     Active Substance: FLUOROURACIL
     Indication: RECTAL CANCER METASTATIC
     Route: 041
     Dates: start: 20131022, end: 20131024
  2. 5?FU [Suspect]
     Active Substance: FLUOROURACIL
     Route: 041
     Dates: start: 20131119, end: 20131121
  3. BISOPROLOL [Concomitant]
     Active Substance: BISOPROLOL
     Indication: HYPERTENSION
     Route: 048
     Dates: start: 20131203
  4. OXALIPLATIN. [Suspect]
     Active Substance: OXALIPLATIN
     Route: 042
     Dates: start: 20131119, end: 20131119
  5. AVASTIN [Suspect]
     Active Substance: BEVACIZUMAB
     Indication: RECTAL CANCER METASTATIC
     Route: 042
     Dates: start: 20140103
  6. DEXAMETHASON [Concomitant]
     Active Substance: DEXAMETHASONE
     Route: 042
     Dates: start: 20130925
  7. AMLODIPIN [Concomitant]
     Active Substance: AMLODIPINE BESYLATE
     Indication: HYPERTENSION
     Route: 048
     Dates: start: 20131022
  8. MCP [Concomitant]
     Active Substance: METOCLOPRAMIDE HYDROCHLORIDE
     Indication: VOMITING
     Route: 048
     Dates: start: 201309
  9. HALOPERIDOL. [Concomitant]
     Active Substance: HALOPERIDOL
     Indication: DEPRESSION
     Route: 048
     Dates: start: 20131008
  10. 5?FU [Suspect]
     Active Substance: FLUOROURACIL
     Route: 041
     Dates: start: 20140103, end: 20140103
  11. OXALIPLATIN. [Suspect]
     Active Substance: OXALIPLATIN
     Route: 042
     Dates: start: 20131105, end: 20131105
  12. AVASTIN [Suspect]
     Active Substance: BEVACIZUMAB
     Dosage: PATIENT RECEIVED 285 MG IN 250 ML NACL AS 30 MINUTES INFUSION DURING EACH THERAPY (DAY 1, 15, 29 AND
     Route: 042
     Dates: start: 20130924
  13. SODIUM CHLORIDE. [Concomitant]
     Active Substance: SODIUM CHLORIDE
     Route: 065
     Dates: start: 20130924
  14. 5?FU [Suspect]
     Active Substance: FLUOROURACIL
     Route: 041
     Dates: start: 20130924, end: 20130926
  15. OXALIPLATIN. [Suspect]
     Active Substance: OXALIPLATIN
     Route: 042
     Dates: start: 20131203, end: 20131203
  16. 5?FU [Suspect]
     Active Substance: FLUOROURACIL
     Route: 041
     Dates: start: 20131105, end: 20131107
  17. OXALIPLATIN. [Suspect]
     Active Substance: OXALIPLATIN
     Route: 042
     Dates: start: 20131008, end: 20131008
  18. OXALIPLATIN. [Suspect]
     Active Substance: OXALIPLATIN
     Route: 042
     Dates: start: 20130924, end: 20130924
  19. HALOPERIDOL. [Concomitant]
     Active Substance: HALOPERIDOL
     Indication: ANXIETY
     Route: 065
  20. 5?FU [Suspect]
     Active Substance: FLUOROURACIL
     Route: 041
     Dates: start: 20131008, end: 20131010
  21. 5?FU [Suspect]
     Active Substance: FLUOROURACIL
     Route: 041
     Dates: start: 20131203, end: 20131205
  22. 5?FU [Suspect]
     Active Substance: FLUOROURACIL
     Route: 040
     Dates: start: 20130924, end: 20130924
  23. OXALIPLATIN. [Suspect]
     Active Substance: OXALIPLATIN
     Indication: RECTAL CANCER METASTATIC
     Route: 042
     Dates: start: 20130103, end: 20140103
  24. OXALIPLATIN. [Suspect]
     Active Substance: OXALIPLATIN
     Route: 042
     Dates: start: 20131022, end: 20131022
  25. AVASTIN [Suspect]
     Active Substance: BEVACIZUMAB
     Route: 042
     Dates: start: 20131022

REACTIONS (8)
  - Multiple organ dysfunction syndrome [Fatal]
  - Diarrhoea [Fatal]
  - Vomiting [Fatal]
  - Agitation [Fatal]
  - Restlessness [Fatal]
  - Nausea [Fatal]
  - Urinary retention [Recovered/Resolved]
  - Tachycardia [Fatal]

NARRATIVE: CASE EVENT DATE: 20130925
